FAERS Safety Report 14920337 (Version 1)
Quarter: 2018Q2

REPORT INFORMATION
  Report Type: Spontaneous
  Country: DE (occurrence: DE)
  Receive Date: 20180521
  Receipt Date: 20180521
  Transmission Date: 20180711
  Serious: Yes (Hospitalization)
  Sender: FDA-Public Use
  Company Number: DE-BAYER-2018-091114

PATIENT
  Age: 79 Year
  Sex: Male

DRUGS (7)
  1. ALLOPURINOL. [Concomitant]
     Active Substance: ALLOPURINOL
     Dosage: 150 MG, OM
  2. TORASEMID [Concomitant]
     Active Substance: TORSEMIDE
     Dosage: 20 MG, OM
  3. RAMIPRIL. [Concomitant]
     Active Substance: RAMIPRIL
     Dosage: 5 MG, BID
     Route: 048
  4. ACETYLSALICYLIC ACID({=100 MG) [Suspect]
     Active Substance: ASPIRIN
     Dosage: 100 MG, OM
  5. PHENPROCOUMON [Suspect]
     Active Substance: PHENPROCOUMON
     Dosage: UNK UNK, PRN
  6. BISOPROLOL [Concomitant]
     Active Substance: BISOPROLOL
     Dosage: 2.5 MG, BID
     Route: 048
  7. SIMVASTATIN. [Concomitant]
     Active Substance: SIMVASTATIN
     Dosage: 40 MG, QD

REACTIONS (10)
  - Overdose [Unknown]
  - Anaemia [Unknown]
  - Asthenia [Unknown]
  - Haematochezia [Unknown]
  - General physical health deterioration [Unknown]
  - Gastrointestinal haemorrhage [Unknown]
  - Dizziness [Unknown]
  - Medication monitoring error [Unknown]
  - Abdominal pain upper [Unknown]
  - Haematoma [Unknown]
